FAERS Safety Report 14898706 (Version 4)
Quarter: 2018Q3

REPORT INFORMATION
  Report Type: Report from Study
  Country: US (occurrence: US)
  Receive Date: 20180515
  Receipt Date: 20180917
  Transmission Date: 20181010
  Serious: Yes (Hospitalization)
  Sender: FDA-Public Use
  Company Number: US-EXELIXIS-XL18418013949

PATIENT
  Age: 54 Year
  Sex: Male
  Weight: 85.7 kg

DRUGS (14)
  1. PAROXETINE. [Concomitant]
     Active Substance: PAROXETINE
  2. XL184 [Suspect]
     Active Substance: CABOZANTINIB
     Indication: HORMONE-REFRACTORY PROSTATE CANCER
     Dosage: 40 MG, QD
     Route: 048
     Dates: start: 20180424, end: 20180505
  3. MULTIVITAMINS [Concomitant]
     Active Substance: VITAMINS
  4. LEUPROLIDE [Concomitant]
     Active Substance: LEUPROLIDE
  5. TADALAFIL [Concomitant]
     Active Substance: TADALAFIL
  6. ATEZOLIZUMAB. [Suspect]
     Active Substance: ATEZOLIZUMAB
     Indication: HORMONE-REFRACTORY PROSTATE CANCER
     Dosage: 1200 MG, Q3WEEKS
     Route: 042
     Dates: start: 20180424
  7. ESOMEPRAZOLE [Concomitant]
     Active Substance: ESOMEPRAZOLE
  8. NAPROXEN. [Concomitant]
     Active Substance: NAPROXEN
  9. VITAMIN B2 [Concomitant]
     Active Substance: RIBOFLAVIN
  10. TRAMADOL. [Concomitant]
     Active Substance: TRAMADOL
  11. ALPRAZOLAM. [Concomitant]
     Active Substance: ALPRAZOLAM
  12. RIZATRIPTAN. [Concomitant]
     Active Substance: RIZATRIPTAN
  13. PROBIOTIC [Concomitant]
     Active Substance: PROBIOTICS NOS
  14. XL184 [Suspect]
     Active Substance: CABOZANTINIB
     Dosage: 20 MG, QD
     Route: 048
     Dates: start: 20180517

REACTIONS (2)
  - Dyspnoea [Recovered/Resolved]
  - Infection [Recovered/Resolved]

NARRATIVE: CASE EVENT DATE: 20180505
